FAERS Safety Report 14176607 (Version 1)
Quarter: 2017Q4

REPORT INFORMATION
  Report Type: Spontaneous
  Country: US (occurrence: US)
  Receive Date: 20171109
  Receipt Date: 20171109
  Transmission Date: 20180321
  Serious: Yes (Hospitalization, Disabling)
  Sender: FDA-Public Use
  Company Number: None

PATIENT
  Age: 27 Year
  Sex: Female

DRUGS (9)
  1. VITAMIN C [Concomitant]
     Active Substance: ASCORBIC ACID
  2. VITAMIN D [Concomitant]
     Active Substance: CHOLECALCIFEROL
  3. TRIAMCINALONE [Suspect]
     Active Substance: TRIAMCINOLONE
  4. PROBIOTICS [Concomitant]
     Active Substance: PROBIOTICS NOS
  5. HYDROCORTISONE. [Suspect]
     Active Substance: HYDROCORTISONE
     Indication: DERMATITIS ATOPIC
     Dates: start: 20101118, end: 20170615
  6. DEXAMETHASONE. [Suspect]
     Active Substance: DEXAMETHASONE
  7. PREDNISONE. [Suspect]
     Active Substance: PREDNISONE
  8. CLOBETASOL [Suspect]
     Active Substance: CLOBETASOL
  9. VITAMIN B COMPLEX [Concomitant]
     Active Substance: CYANOCOBALAMIN\DEXPANTHENOL\NIACINAMIDE\PYRIDOXINE HYDROCHLORIDE\RIBOFLAVIN 5^-PHOSPHATE SODIUM\THIAMINE HYDROCHLORIDE\VITAMIN B COMPLEX

REACTIONS (7)
  - Impaired quality of life [None]
  - Post-traumatic stress disorder [None]
  - Suicide attempt [None]
  - Anxiety [None]
  - Steroid withdrawal syndrome [None]
  - Impaired work ability [None]
  - Depression [None]

NARRATIVE: CASE EVENT DATE: 20140615
